FAERS Safety Report 5806433-0 (Version None)
Quarter: 2008Q3

REPORT INFORMATION
  Report Type: 
  Country: None (occurrence: None)
  Receive Date: 20080710
  Receipt Date: 20080701
  Transmission Date: 20090109
  Serious: No
  Sender: FDA-Public Use
  Company Number: ZA-ELI_LILLY_AND_COMPANY-ZA200806001062

PATIENT
  Age: 9 Year
  Sex: Male

DRUGS (5)
  1. STRATTERA [Suspect]
     Indication: ATTENTION DEFICIT/HYPERACTIVITY DISORDER
     Dosage: UNK UNK, DAILY (1/D)
     Route: 048
     Dates: start: 20070326
  2. STRATTERA [Suspect]
     Dosage: 40 MG, DAILY (1/D)
     Route: 048
     Dates: start: 20070331, end: 20080101
  3. RITALIN [Concomitant]
     Indication: ATTENTION DEFICIT/HYPERACTIVITY DISORDER
     Dosage: 10 MG, EACH MORNING
     Route: 048
  4. RITALIN [Concomitant]
     Dosage: 10 MG, EACH EVENING
     Route: 048
  5. RITALIN [Concomitant]
     Dosage: UNK, UNKNOWN
     Route: 065
     Dates: start: 20080212

REACTIONS (3)
  - CHEST PAIN [None]
  - SINUS ARRHYTHMIA [None]
  - SINUS TACHYCARDIA [None]
